FAERS Safety Report 7796065-X (Version None)
Quarter: 2011Q4

REPORT INFORMATION
  Report Type: 
  Country: None (occurrence: None)
  Receive Date: 20111004
  Receipt Date: 20110920
  Transmission Date: 20120403
  Serious: Yes (Other)
  Sender: FDA-Public Use
  Company Number: GB-BAYER-201031793GPV

PATIENT
  Age: 36 Year
  Sex: Female

DRUGS (1)
  1. CLOTRIMAZOLE [Suspect]
     Indication: HEAT RASH
     Dosage: 50 G

REACTIONS (1)
  - CAESAREAN SECTION [None]
